FAERS Safety Report 4373086-0 (Version None)
Quarter: 2004Q2

REPORT INFORMATION
  Report Type: 
  Country: None (occurrence: None)
  Receive Date: 20040526
  Receipt Date: 20040513
  Transmission Date: 20050107
  Serious: Yes (Death)
  Sender: FDA-Public Use
  Company Number: 2004030762

PATIENT
  Age: 41 Year
  Sex: Male

DRUGS (4)
  1. VIAGRA [Suspect]
     Indication: ILL-DEFINED DISORDER
     Dosage: ORAL
     Route: 048
  2. PAROXETINE HCL [Concomitant]
  3. TRIAZOLAM [Concomitant]
  4. BROTIZOLAM (BROTIZOLAM) [Concomitant]

REACTIONS (2)
  - CARDIAC FAILURE ACUTE [None]
  - CARDIO-RESPIRATORY ARREST [None]
